FAERS Safety Report 18523629 (Version 1)
Quarter: 2020Q4

REPORT INFORMATION
  Report Type: Report from Study
  Country: DE (occurrence: JP)
  Receive Date: 20201119
  Receipt Date: 20201119
  Transmission Date: 20210114
  Serious: Yes (Other)
  Sender: FDA-Public Use
  Company Number: JP-BRISTOL-MYERS SQUIBB COMPANY-BMS-2015-035235

PATIENT
  Age: 68 Year
  Sex: Male

DRUGS (2)
  1. NEXIUM MUPS [ESOMEPRAZOLE MAGNESIUM] [Suspect]
     Active Substance: ESOMEPRAZOLE MAGNESIUM
     Indication: DYSPEPSIA
     Dosage: UNK, UNKNOWN
     Route: 048
  2. CETUXIMAB. [Suspect]
     Active Substance: CETUXIMAB
     Indication: SQUAMOUS CELL CARCINOMA OF HEAD AND NECK
     Dosage: UNK, UNKNOWN
     Route: 041
     Dates: start: 20140526, end: 20140630

REACTIONS (20)
  - Dry mouth [Recovering/Resolving]
  - Dry skin [Recovering/Resolving]
  - Dyspepsia [Recovering/Resolving]
  - Stomatitis [Recovering/Resolving]
  - Blood alkaline phosphatase increased [Recovered/Resolved]
  - Angular cheilitis [Recovered/Resolved]
  - Neutrophil count decreased [Recovered/Resolved]
  - White blood cell count decreased [Recovered/Resolved]
  - Hyperkalaemia [Recovered/Resolved]
  - Aspartate aminotransferase increased [Recovered/Resolved]
  - Pyrexia [Recovered/Resolved]
  - Nausea [Recovering/Resolving]
  - Dermatitis acneiform [Recovering/Resolving]
  - Hypomagnesaemia [Recovered/Resolved]
  - Bacteraemia [Recovered/Resolved]
  - Anaemia [Recovering/Resolving]
  - Hypocalcaemia [Recovered/Resolved]
  - Pharyngeal inflammation [Recovering/Resolving]
  - Radiation skin injury [Recovering/Resolving]
  - Hyponatraemia [Recovered/Resolved]

NARRATIVE: CASE EVENT DATE: 20140606
